FAERS Safety Report 7107967-1 (Version None)
Quarter: 2010Q4

REPORT INFORMATION
  Report Type: 
  Country: None (occurrence: None)
  Receive Date: 20101018
  Receipt Date: 20100521
  Transmission Date: 20110411
  Serious: Yes (Other)
  Sender: FDA-Public Use
  Company Number: HQWYE369306SEP06

PATIENT
  Age: 46 Year
  Sex: Female

DRUGS (3)
  1. PREMARIN [Suspect]
  2. ESTRATEST [Suspect]
  3. ESTROGENS NOS (ESTROGENS NOS, ) [Suspect]

REACTIONS (2)
  - BREAST CANCER [None]
  - CHRONIC OBSTRUCTIVE PULMONARY DISEASE [None]
